FAERS Safety Report 6916498-0 (Version None)
Quarter: 2010Q3

REPORT INFORMATION
  Report Type: 
  Country: None (occurrence: None)
  Receive Date: 20100810
  Receipt Date: 20100728
  Transmission Date: 20110219
  Serious: Yes (Hospitalization)
  Sender: FDA-Public Use
  Company Number: PHHY2010DE50642

PATIENT
  Age: 68 Year
  Sex: Female

DRUGS (1)
  1. VOLTAREN [Suspect]
     Dosage: ONCE DAILY
     Route: 048
     Dates: start: 20100601, end: 20100709

REACTIONS (5)
  - AGRANULOCYTOSIS [None]
  - MUCOSAL INFLAMMATION [None]
  - OVERDOSE [None]
  - SEPSIS [None]
  - ULCER [None]
